FAERS Safety Report 8210895-1 (Version None)
Quarter: 2012Q1

REPORT INFORMATION
  Report Type: 
  Country: None (occurrence: None)
  Receive Date: 20120315
  Receipt Date: 20120302
  Transmission Date: 20120608
  Serious: Yes (Death, Hospitalization)
  Sender: FDA-Public Use
  Company Number: US-RANBAXY-2012US-53673

PATIENT
  Age: 27 Year
  Sex: Female

DRUGS (10)
  1. SERTRALINE HYDROCHLORIDE [Suspect]
     Dosage: 50MG DAILY
     Route: 065
  2. SERTRALINE HYDROCHLORIDE [Suspect]
     Indication: DEPRESSION
     Dosage: UNK
     Route: 065
  3. SERTRALINE HYDROCHLORIDE [Suspect]
     Indication: HALLUCINATION, AUDITORY
     Dosage: UNK
     Route: 065
  4. QUETIAPINE [Suspect]
     Indication: PRODUCT USED FOR UNKNOWN INDICATION
     Dosage: UNK
     Route: 065
  5. HALOPERIDOL [Suspect]
     Indication: AGITATION
     Dosage: UNK
     Route: 030
  6. SERTRALINE HYDROCHLORIDE [Suspect]
     Dosage: UNK
     Route: 065
  7. LORAZEPAM [Suspect]
     Indication: PRODUCT USED FOR UNKNOWN INDICATION
     Dosage: UNK
     Route: 065
  8. LORAZEPAM [Suspect]
     Indication: AGITATION
     Dosage: UNK
     Route: 042
  9. RISPERIDONE [Suspect]
     Indication: HALLUCINATION, AUDITORY
     Dosage: 0.5 MG, QD AT BEDTIME
     Route: 065
  10. LORAZEPAM [Suspect]
     Indication: CATATONIA
     Dosage: 2 MG, SINGLE
     Route: 030

REACTIONS (13)
  - DYSPNOEA [None]
  - KETONURIA [None]
  - DEPRESSION [None]
  - PULMONARY EMBOLISM [None]
  - AGITATION [None]
  - CATATONIA [None]
  - HALLUCINATION, AUDITORY [None]
  - CARDIO-RESPIRATORY ARREST [None]
  - BLOOD FIBRINOGEN INCREASED [None]
  - BLOOD GLUCOSE ABNORMAL [None]
  - TACHYCARDIA [None]
  - HYPOTENSION [None]
  - CHEST PAIN [None]
